FAERS Safety Report 9108273 (Version 1)
Quarter: 2013Q1

REPORT INFORMATION
  Report Type: Spontaneous
  Country: CH (occurrence: CH)
  Receive Date: 20130222
  Receipt Date: 20130222
  Transmission Date: 20140127
  Serious: Yes (Hospitalization)
  Sender: FDA-Public Use
  Company Number: CH-BAYER-2013-022169

PATIENT
  Age: 43 Year
  Sex: Female

DRUGS (8)
  1. ASPIRIN CARDIO [Suspect]
     Dosage: 100 MG, QD
     Route: 048
     Dates: start: 20121219
  2. MARCOUMAR [Suspect]
     Dosage: 3 MG, PRN
     Route: 048
  3. PLAVIX [Suspect]
     Dosage: 75 MG, QD
     Route: 048
  4. LYRICA [Concomitant]
     Dosage: 50 MG, BID
     Route: 048
  5. FLUCTINE [Concomitant]
     Dosage: 20 MG, QD
     Route: 048
  6. SORTIS [Concomitant]
     Dosage: 40 MG, QD
     Route: 048
  7. PANTOZOL [Concomitant]
     Dosage: 40 MG/D, QD
     Route: 048
  8. TEMESTA [Concomitant]
     Dosage: 1 MG, QD
     Route: 048

REACTIONS (2)
  - Haematoma [Recovering/Resolving]
  - Prothrombin time prolonged [None]
